FAERS Safety Report 17532880 (Version 1)
Quarter: 2020Q1

REPORT INFORMATION
  Report Type: Spontaneous
  Country: IE (occurrence: IE)
  Receive Date: 20200312
  Receipt Date: 20200312
  Transmission Date: 20200409
  Serious: Yes (Hospitalization, Other)
  Sender: FDA-Public Use
  Company Number: NVSC2020IE065110

PATIENT
  Sex: Male

DRUGS (3)
  1. CLARITHROMYCIN. [Suspect]
     Active Substance: CLARITHROMYCIN
     Indication: RESPIRATORY TRACT INFECTION
     Dosage: 500 MG, Q12H
     Route: 048
     Dates: start: 201902
  2. PROGRAF [Interacting]
     Active Substance: TACROLIMUS
     Indication: HEART TRANSPLANT
     Dosage: 3MG MANE AND 2.5MG TARDE, UNKNOWN FREQ.
     Route: 048
  3. PROGRAF [Interacting]
     Active Substance: TACROLIMUS
     Dosage: UNK (3MG MANE AND 2.5MG TARDE, UNKNOWN FREQ.)
     Route: 048

REACTIONS (4)
  - Acute kidney injury [Recovered/Resolved]
  - Drug interaction [Unknown]
  - Immunosuppressant drug level increased [Recovered/Resolved]
  - Blood creatinine increased [Recovered/Resolved]

NARRATIVE: CASE EVENT DATE: 201902
